FAERS Safety Report 4721835-1 (Version None)
Quarter: 2005Q3

REPORT INFORMATION
  Report Type: 
  Country: None (occurrence: None)
  Receive Date: 20050721
  Receipt Date: 20050504
  Transmission Date: 20060218
  Serious: Yes (Death)
  Sender: FDA-Public Use
  Company Number: US-BRISTOL-MYERS SQUIBB COMPANY-12957122

PATIENT
  Age: 57 Year
  Sex: Female

DRUGS (2)
  1. COUMADIN [Suspect]
     Indication: BLOOD VISCOSITY INCREASED
     Route: 048
     Dates: start: 20010101
  2. SUPER POLIGRIP [Suspect]
     Indication: MEDICAL DEVICE COMPLICATION
     Route: 004
     Dates: start: 19860101

REACTIONS (1)
  - HAEMORRHAGE [None]
